FAERS Safety Report 17708136 (Version 2)
Quarter: 2020Q2

REPORT INFORMATION
  Report Type: Report from Study
  Country: FR (occurrence: FR)
  Receive Date: 20200425
  Receipt Date: 20200428
  Transmission Date: 20200714
  Serious: Yes (Other)
  Sender: FDA-Public Use
  Company Number: FR-ROCHE-2588784

PATIENT
  Sex: Female

DRUGS (1)
  1. TRASTUZUMAB. [Suspect]
     Active Substance: TRASTUZUMAB
     Indication: BREAST CANCER
     Route: 065

REACTIONS (7)
  - Neurotoxicity [Unknown]
  - Cardiotoxicity [Unknown]
  - Toxicity to various agents [Unknown]
  - Pulmonary toxicity [Unknown]
  - Skin toxicity [Unknown]
  - Female reproductive tract disorder [Unknown]
  - Gastrointestinal toxicity [Unknown]
